FAERS Safety Report 4910937-2 (Version None)
Quarter: 2006Q1

REPORT INFORMATION
  Report Type: 
  Country: None (occurrence: None)
  Receive Date: 20060214
  Receipt Date: 20060202
  Transmission Date: 20060701
  Serious: Yes (Life-Threatening)
  Sender: FDA-Public Use
  Company Number: IT-ROCHE-434767

PATIENT
  Age: 73 Year
  Sex: Female

DRUGS (1)
  1. ROCEPHIN [Suspect]
     Dosage: FORMULATION = VIAL
     Route: 042
     Dates: start: 20060127, end: 20060127

REACTIONS (2)
  - CARDIAC ARREST [None]
  - RESPIRATORY ARREST [None]
